FAERS Safety Report 8305117-7 (Version None)
Quarter: 2012Q2

REPORT INFORMATION
  Report Type: 
  Country: None (occurrence: None)
  Receive Date: 20120423
  Receipt Date: 20120417
  Transmission Date: 20120825
  Serious: Yes (Other)
  Sender: FDA-Public Use
  Company Number: US-AMGEN-USASP2012024802

PATIENT
  Age: 59 Year
  Sex: Female

DRUGS (6)
  1. RIBAVIRIN [Concomitant]
     Indication: HEPATITIS C
     Dosage: UNK
  2. PROCRIT [Suspect]
     Indication: ANAEMIA
     Dosage: 40000 IU, QWK
     Route: 058
  3. LISINOPRIL [Concomitant]
     Indication: HYPERTENSION
     Dosage: 20 MG, UNK
  4. TELAPREVIR [Concomitant]
     Indication: HEPATITIS C
     Dosage: UNK
  5. PEG-INTRON [Concomitant]
     Indication: HEPATITIS C
     Dosage: UNK
  6. HYDROCHLORTHIAZID [Concomitant]
     Indication: HYPERTENSION
     Dosage: UNK

REACTIONS (4)
  - EYELID OEDEMA [None]
  - DYSPHONIA [None]
  - SWELLING FACE [None]
  - RASH ERYTHEMATOUS [None]
